FAERS Safety Report 13576905 (Version 1)
Quarter: 2017Q2

REPORT INFORMATION
  Report Type: Report from Study
  Country: NL (occurrence: NL)
  Receive Date: 20170524
  Receipt Date: 20170524
  Transmission Date: 20170830
  Serious: Yes (Other)
  Sender: FDA-Public Use
  Company Number: NL-PFIZER INC-2017224713

PATIENT

DRUGS (2)
  1. OMBRABULIN [Suspect]
     Active Substance: OMBRABULIN
     Indication: NEOPLASM
     Dosage: 35 MG/M2, CYCLIC (30-MIN INTRAVENOUS INFUSION ON DAY 1, EVERY 3 WEEKS)
     Route: 042
  2. DOCETAXEL. [Suspect]
     Active Substance: DOCETAXEL
     Indication: NEOPLASM
     Dosage: 75 MG/M2, CYCLIC(ON DAY 2,1-H INFUSION,24H AFTER THE END OF THE OMBRABULIN INFUSION,EVERY 3 WEEKS)
     Route: 042

REACTIONS (1)
  - Oesophageal fistula [Unknown]
